FAERS Safety Report 17161346 (Version 2)
Quarter: 2020Q1

REPORT INFORMATION
  Report Type: Spontaneous
  Country: US (occurrence: US)
  Receive Date: 20191216
  Receipt Date: 20200121
  Transmission Date: 20200409
  Serious: Yes (Other)
  Sender: FDA-Public Use
  Company Number: US-ASTRAZENECA-2019SE10985

PATIENT
  Age: 64 Year
  Sex: Female
  Weight: 55.3 kg

DRUGS (54)
  1. NEXIUM [Suspect]
     Active Substance: ESOMEPRAZOLE MAGNESIUM
     Indication: GASTROOESOPHAGEAL REFLUX DISEASE
     Route: 048
     Dates: start: 1990, end: 2004
  2. PRILOSEC [Suspect]
     Active Substance: OMEPRAZOLE MAGNESIUM
     Indication: GASTROOESOPHAGEAL REFLUX DISEASE
     Dosage: GENERIC
     Route: 065
     Dates: start: 2007, end: 2012
  3. PROVERA [Concomitant]
     Active Substance: MEDROXYPROGESTERONE ACETATE
     Indication: TRANSGENDER HORMONAL THERAPY
     Route: 065
     Dates: start: 2015
  4. LEVOTHYROXINE. [Concomitant]
     Active Substance: LEVOTHYROXINE
     Indication: THYROID DISORDER
     Route: 065
     Dates: start: 2008
  5. NORTRIPTYLINE [Concomitant]
     Active Substance: NORTRIPTYLINE
     Indication: DEPRESSION
     Route: 065
     Dates: start: 2011
  6. LISINOPRIL. [Concomitant]
     Active Substance: LISINOPRIL
     Indication: CARDIAC FAILURE
     Route: 065
     Dates: start: 2011
  7. DOXYCYCLINE. [Concomitant]
     Active Substance: DOXYCYCLINE
     Indication: INFECTION
     Route: 065
     Dates: start: 2018
  8. VITAMIN D [Concomitant]
     Active Substance: VITAMIN D NOS
     Indication: RENAL IMPAIRMENT
     Route: 065
     Dates: start: 2018
  9. DEXILANT [Suspect]
     Active Substance: DEXLANSOPRAZOLE
     Indication: GASTROOESOPHAGEAL REFLUX DISEASE
     Route: 048
  10. ELIQUIS [Concomitant]
     Active Substance: APIXABAN
     Indication: ANTICOAGULANT THERAPY
     Route: 065
     Dates: start: 2017
  11. OXYCODONE-ACETAMINOPHEN [Concomitant]
     Active Substance: ACETAMINOPHEN\OXYCODONE HYDROCHLORIDE
     Indication: ARTHRALGIA
     Route: 065
     Dates: start: 2018
  12. PROMETHAZINE [Concomitant]
     Active Substance: PROMETHAZINE HYDROCHLORIDE
     Indication: PAIN
     Route: 065
     Dates: start: 2013, end: 2014
  13. PREVACID [Suspect]
     Active Substance: LANSOPRAZOLE
     Indication: GASTROOESOPHAGEAL REFLUX DISEASE
     Route: 065
     Dates: start: 2004, end: 2012
  14. ESTRADIOL. [Concomitant]
     Active Substance: ESTRADIOL
     Indication: MENOPAUSE
     Route: 065
     Dates: start: 2011
  15. TRAMADOL. [Concomitant]
     Active Substance: TRAMADOL
     Indication: PAIN
     Route: 065
     Dates: start: 2018
  16. VITAMIN D [Concomitant]
     Active Substance: VITAMIN D NOS
     Indication: HYPOVITAMINOSIS
     Route: 065
     Dates: start: 2018
  17. CLARITIN [Concomitant]
     Active Substance: LORATADINE
     Indication: COUGH
     Route: 065
  18. AXID AR [Concomitant]
     Active Substance: NIZATIDINE
     Route: 065
  19. FUROSEMIDE. [Concomitant]
     Active Substance: FUROSEMIDE
     Indication: CARDIAC DISORDER
     Route: 065
     Dates: start: 2007
  20. ALENDRONATE SODIUM. [Concomitant]
     Active Substance: ALENDRONATE SODIUM
     Indication: OSTEOPOROSIS
     Route: 065
     Dates: start: 2016
  21. WARFARIN [Concomitant]
     Active Substance: WARFARIN
     Indication: ANTICOAGULANT THERAPY
     Route: 065
     Dates: start: 2011
  22. BENADRYL [Concomitant]
     Active Substance: DIPHENHYDRAMINE HYDROCHLORIDE
     Indication: MULTIPLE ALLERGIES
     Route: 065
  23. MAALOX ANTACID [Concomitant]
     Active Substance: ALUMINUM HYDROXIDE\DIMETHICONE\MAGNESIUM HYDROXIDE
     Dosage: 2-3 TIMES PER DAY
     Route: 065
  24. CELEXA [Concomitant]
     Active Substance: CITALOPRAM HYDROBROMIDE
  25. DEXILANT [Suspect]
     Active Substance: DEXLANSOPRAZOLE
     Indication: GASTROOESOPHAGEAL REFLUX DISEASE
     Route: 048
     Dates: start: 2012, end: 2014
  26. DEXILANT [Suspect]
     Active Substance: DEXLANSOPRAZOLE
     Indication: GASTROOESOPHAGEAL REFLUX DISEASE
     Route: 048
     Dates: start: 20130214
  27. METOPROLOL. [Concomitant]
     Active Substance: METOPROLOL
     Indication: CARDIAC DISORDER
     Route: 065
     Dates: start: 2019
  28. BUPROPION. [Concomitant]
     Active Substance: BUPROPION
     Indication: DEPRESSION
     Route: 065
     Dates: start: 2011, end: 2017
  29. BUPROPION. [Concomitant]
     Active Substance: BUPROPION
     Indication: DEPRESSION
     Route: 065
  30. LEVOXYL [Concomitant]
     Active Substance: LEVOTHYROXINE SODIUM
     Indication: THYROID DISORDER
     Route: 065
     Dates: start: 2011
  31. TIKOSYN [Concomitant]
     Active Substance: DOFETILIDE
     Indication: HEART RATE IRREGULAR
     Route: 065
     Dates: start: 2011
  32. CEFUROXIME AXETIL. [Concomitant]
     Active Substance: CEFUROXIME AXETIL
     Indication: ANTIBIOTIC THERAPY
     Route: 065
     Dates: start: 2017
  33. VITAMIN D3 [Concomitant]
     Active Substance: CHOLECALCIFEROL
     Indication: HYPOVITAMINOSIS
     Route: 065
     Dates: start: 2018, end: 2018
  34. VITAMIN B12 [Concomitant]
     Active Substance: CYANOCOBALAMIN
     Indication: RENAL IMPAIRMENT
     Route: 065
     Dates: start: 2018
  35. PEPCID AC [Concomitant]
     Active Substance: FAMOTIDINE
     Route: 065
  36. MYLANTA [Concomitant]
     Active Substance: ALUMINUM HYDROXIDE\DIMETHICONE\MAGNESIUM HYDROXIDE
     Dosage: ONCE OR TWICE A DAY
     Route: 065
  37. ROLAIDS [Concomitant]
     Active Substance: CALCIUM CARBONATE\MAGNESIUM HYDROXIDE
     Dosage: 2-3 TIMES PER DAY
     Route: 065
  38. AMIODARONE [Concomitant]
     Active Substance: AMIODARONE
     Dates: start: 20140923
  39. PRILOSEC [Suspect]
     Active Substance: OMEPRAZOLE MAGNESIUM
     Indication: GASTROOESOPHAGEAL REFLUX DISEASE
     Route: 048
     Dates: start: 2004, end: 2012
  40. BUPROPION. [Concomitant]
     Active Substance: BUPROPION
     Indication: EX-TOBACCO USER
     Route: 065
     Dates: start: 2011, end: 2017
  41. BUPROPION. [Concomitant]
     Active Substance: BUPROPION
     Indication: EX-TOBACCO USER
     Route: 065
  42. TAGAMET HB [Concomitant]
     Active Substance: CIMETIDINE
     Route: 065
  43. ZANTAC [Concomitant]
     Active Substance: RANITIDINE HYDROCHLORIDE
     Route: 065
  44. WELLBUTRIN SR [Concomitant]
     Active Substance: BUPROPION HYDROCHLORIDE
  45. CITALOPRAM [Concomitant]
     Active Substance: CITALOPRAM HYDROBROMIDE
     Indication: ANTIDEPRESSANT THERAPY
     Route: 065
     Dates: start: 2008
  46. CLONAZEPAM. [Concomitant]
     Active Substance: CLONAZEPAM
     Indication: NERVE INJURY
     Route: 065
     Dates: start: 2008
  47. LISINOPRIL. [Concomitant]
     Active Substance: LISINOPRIL
     Indication: CARDIAC FAILURE
     Route: 065
  48. NITROGLYCERIN. [Concomitant]
     Active Substance: NITROGLYCERIN
     Indication: CHEST PAIN
     Route: 065
     Dates: end: 2018
  49. VITAMIN B12 [Concomitant]
     Active Substance: CYANOCOBALAMIN
     Indication: HYPOVITAMINOSIS
     Route: 065
     Dates: start: 2018
  50. PRAVASTATIN. [Concomitant]
     Active Substance: PRAVASTATIN
     Indication: BLOOD PRESSURE MEASUREMENT
     Route: 065
     Dates: start: 2013
  51. DIAZEPAM. [Concomitant]
     Active Substance: DIAZEPAM
     Indication: ANXIETY
     Route: 065
     Dates: start: 2012
  52. BACLOFEN. [Concomitant]
     Active Substance: BACLOFEN
     Indication: MUSCLE RELAXANT THERAPY
     Route: 065
     Dates: start: 2018
  53. NITROGLYCERIN. [Concomitant]
     Active Substance: NITROGLYCERIN
     Indication: CHEST PAIN
     Route: 065
     Dates: start: 2011, end: 2018
  54. PEPTO-BISMOL [Concomitant]
     Active Substance: BISMUTH SUBSALICYLATE
     Dosage: ONCE OR TWICE A DAY
     Route: 065

REACTIONS (5)
  - Renal injury [Unknown]
  - Acute kidney injury [Unknown]
  - Chronic kidney disease [Not Recovered/Not Resolved]
  - Hyperparathyroidism secondary [Unknown]
  - Nephrogenic anaemia [Unknown]

NARRATIVE: CASE EVENT DATE: 2011
